FAERS Safety Report 17304874 (Version 8)
Quarter: 2022Q1

REPORT INFORMATION
  Report Type: Spontaneous
  Country: US (occurrence: US)
  Receive Date: 20200123
  Receipt Date: 20220201
  Transmission Date: 20220423
  Serious: Yes (Other)
  Sender: FDA-Public Use
  Company Number: US-PFIZER INC-2020029436

PATIENT
  Age: 60 Year
  Sex: Female

DRUGS (6)
  1. XELJANZ [Suspect]
     Active Substance: TOFACITINIB CITRATE
     Indication: Rheumatoid arthritis
     Dosage: 5 MG, 2X/DAY
     Route: 048
     Dates: start: 201301, end: 202002
  2. XELJANZ [Suspect]
     Active Substance: TOFACITINIB CITRATE
     Dosage: UNK, (RESTARTED FOR 1 WEEK)
     Dates: start: 202003, end: 20200316
  3. XELJANZ [Suspect]
     Active Substance: TOFACITINIB CITRATE
     Dosage: 5 MG, 2X/DAY
     Route: 048
     Dates: start: 20201002, end: 20210113
  4. XELJANZ [Suspect]
     Active Substance: TOFACITINIB CITRATE
     Dosage: 5 MG, 2X/DAY
     Route: 048
     Dates: start: 20210304
  5. XELJANZ [Suspect]
     Active Substance: TOFACITINIB CITRATE
     Dosage: 5 MG, 2X/DAY
     Route: 048
     Dates: start: 202201
  6. METHOTREXATE [Concomitant]
     Active Substance: METHOTREXATE
     Dosage: UNK

REACTIONS (23)
  - Neuropathy peripheral [Not Recovered/Not Resolved]
  - Hypothyroidism [Unknown]
  - Bronchitis [Unknown]
  - Ear infection [Unknown]
  - Intentional dose omission [Unknown]
  - Product prescribing error [Unknown]
  - Intentional product misuse [Unknown]
  - Influenza like illness [Unknown]
  - Cough [Unknown]
  - Sinus congestion [Unknown]
  - Fatigue [Not Recovered/Not Resolved]
  - Depression [Unknown]
  - Back pain [Unknown]
  - Finger deformity [Unknown]
  - Pain in extremity [Unknown]
  - Hypoaesthesia [Unknown]
  - Paraesthesia [Unknown]
  - Gait disturbance [Unknown]
  - Condition aggravated [Unknown]
  - Arthralgia [Unknown]
  - Weight decreased [Unknown]
  - COVID-19 [Unknown]
  - Arthritis [Unknown]

NARRATIVE: CASE EVENT DATE: 20191101
